FAERS Safety Report 6077985-3 (Version None)
Quarter: 2009Q1

REPORT INFORMATION
  Report Type: 
  Country: None (occurrence: None)
  Receive Date: 20090213
  Receipt Date: 20090206
  Transmission Date: 20090719
  Serious: Yes (Death, Other)
  Sender: FDA-Public Use
  Company Number: JP-ELI_LILLY_AND_COMPANY-JP200902000293

PATIENT
  Age: 94 Year
  Sex: Male

DRUGS (1)
  1. HUMULIN R [Suspect]
     Dosage: 80 IU, OTHER
     Route: 042
     Dates: start: 20081201, end: 20081201

REACTIONS (4)
  - HYPOGLYCAEMIA [None]
  - HYPOGLYCAEMIC COMA [None]
  - MEDICATION ERROR [None]
  - PNEUMONIA [None]
